FAERS Safety Report 26006106 (Version 1)
Quarter: 2025Q4

REPORT INFORMATION
  Report Type: Spontaneous
  Country: EU (occurrence: EU)
  Receive Date: 20251106
  Receipt Date: 20251106
  Transmission Date: 20260117
  Serious: Yes (Death)
  Sender: BAYER HEALTHCARE PHARMACEUTICALS INC.
  Company Number: None

PATIENT
  Age: 14 Year
  Sex: Female

DRUGS (4)
  1. DROSPIRENONE [Suspect]
     Active Substance: DROSPIRENONE
     Route: 048
  2. ZOLOFT [Concomitant]
     Active Substance: SERTRALINE HYDROCHLORIDE
     Indication: Anxiety
     Dosage: ZOLOFT DOSE REDUCTION COINCIDING WITH START OF THE EVENT.
  3. LISDEXAMFETAMINE DIMESYLATE [Concomitant]
     Active Substance: LISDEXAMFETAMINE DIMESYLATE
     Indication: Attention deficit hyperactivity disorder
  4. MELATONIN [Concomitant]
     Active Substance: MELATONIN
     Indication: Initial insomnia
     Dosage: 1 MG AT NIGHT

REACTIONS (13)
  - Pulmonary embolism [Fatal]
  - Dyspnoea [Fatal]
  - Hyperventilation [Fatal]
  - Cardiac arrest [Fatal]
  - Pulseless electrical activity [Fatal]
  - Resuscitation [Fatal]
  - Pulmonary embolism [Fatal]
  - Pulmonary vein occlusion [Fatal]
  - Cerebral ischaemia [Fatal]
  - Brain herniation [Fatal]
  - Pulmonary embolism [Fatal]
  - Lung assist device therapy [Fatal]
  - Brain oedema [Fatal]

NARRATIVE: CASE EVENT DATE: 20250906
